FAERS Safety Report 9041022 (Version 1)
Quarter: 2013Q1

REPORT INFORMATION
  Report Type: Spontaneous
  Country: US (occurrence: None)
  Receive Date: 20130123
  Receipt Date: 20130123
  Transmission Date: 20140127
  Serious: No
  Sender: FDA-Public Use
  Company Number: None

PATIENT
  Age: 51 Year
  Sex: Female
  Weight: 86.18 kg

DRUGS (1)
  1. LANSOPRAZOLE [Suspect]
     Indication: DYSPEPSIA
     Dosage: 1 CAP  DAILY (14 DAYS)  SWALLOW
     Route: 048
     Dates: start: 20121205, end: 20121210

REACTIONS (3)
  - Diarrhoea [None]
  - Lethargy [None]
  - Fatigue [None]
